FAERS Safety Report 8603134 (Version 4)
Quarter: 2015Q2

REPORT INFORMATION
  Report Type: Report from Study
  Country: IT (occurrence: IT)
  Receive Date: 20120607
  Receipt Date: 20150518
  Transmission Date: 20150821
  Serious: Yes (Other)
  Sender: FDA-Public Use
  Company Number: IT-ROCHE-795735

PATIENT

DRUGS (8)
  1. PREDNISONE. [Suspect]
     Active Substance: PREDNISONE
     Indication: B-CELL LYMPHOMA
     Dosage: 8 DOSES - RCVP ARM, 6 DOSES - RCHOP ARM
     Route: 048
  2. FLUDARABINE [Suspect]
     Active Substance: FLUDARABINE PHOSPHATE
     Indication: B-CELL LYMPHOMA
     Dosage: DAY 1-3
     Route: 042
  3. CYCLOPHOSPHAMIDE. [Suspect]
     Active Substance: CYCLOPHOSPHAMIDE
     Indication: B-CELL LYMPHOMA
     Dosage: 8 DOSES - RCVP ARM, 6 DOSES - RCHOP ARM
     Route: 042
  4. MITOXANTRONE [Suspect]
     Active Substance: MITOXANTRONE HYDROCHLORIDE
     Indication: B-CELL LYMPHOMA
     Dosage: DAY 1
     Route: 042
  5. DOXORUBICIN [Suspect]
     Active Substance: DOXORUBICIN
     Indication: B-CELL LYMPHOMA
     Dosage: 8 DOSES - RCVP ARM, 6 DOSES - RCHOP ARM
     Route: 042
  6. RITUXIMAB [Suspect]
     Active Substance: RITUXIMAB
     Indication: B-CELL LYMPHOMA
     Dosage: 8 DOSES - RCVP ARM, 6 DOSES - RCHOP ARM?DOSE: 375 MG/M2 IN R-CVP ARM AND 750 MG/M2 IN R-CHOP ARM
     Route: 042
  7. PREDNISONE. [Suspect]
     Active Substance: PREDNISONE
     Route: 048
  8. VINCRISTINE [Suspect]
     Active Substance: VINCRISTINE
     Indication: B-CELL LYMPHOMA
     Dosage: 8 DOSES - RCVP ARM, 6 DOSES - RCHOP ARM?DOSE - (MAXIMUM OF 2 MG/M2)
     Route: 042

REACTIONS (6)
  - Neoplasm malignant [Unknown]
  - Thrombocytopenia [Unknown]
  - Neutropenia [Recovered/Resolved]
  - Neurotoxicity [Unknown]
  - Cardiac disorder [Unknown]
  - Infection [Unknown]
